FAERS Safety Report 16250755 (Version 2)
Quarter: 2019Q2

REPORT INFORMATION
  Report Type: Spontaneous
  Country: JP (occurrence: JP)
  Receive Date: 20190429
  Receipt Date: 20190511
  Transmission Date: 20190711
  Serious: Yes (Other)
  Sender: FDA-Public Use
  Company Number: JP-ROCHE-2294254

PATIENT
  Age: 9 Decade
  Sex: Female

DRUGS (1)
  1. XOFLUZA [Suspect]
     Active Substance: BALOXAVIR MARBOXIL
     Indication: INFLUENZA
     Route: 048
     Dates: start: 20190108, end: 20190108

REACTIONS (6)
  - Pneumococcal infection [Recovered/Resolved]
  - Throat irritation [Recovered/Resolved]
  - Cough [Recovered/Resolved]
  - Malaise [Recovered/Resolved]
  - Dysgeusia [Recovered/Resolved]
  - Pyrexia [Recovered/Resolved]

NARRATIVE: CASE EVENT DATE: 20190112
